FAERS Safety Report 9777929 (Version 2)
Quarter: 2013Q4

REPORT INFORMATION
  Report Type: Report from Study
  Country: US (occurrence: US)
  Receive Date: 20131223
  Receipt Date: 20131223
  Transmission Date: 20140711
  Serious: Yes (Hospitalization)
  Sender: FDA-Public Use
  Company Number: US-ROCHE-711600

PATIENT
  Age: 63 Year
  Sex: Male

DRUGS (2)
  1. BEVACIZUMAB [Suspect]
     Indication: RENAL CELL CARCINOMA
     Dosage: OVER 30-90 MINS ON DAYS 1 AND 15, DATE OF LAST DOSE PRIOR TO SAE: 04 MAY 2010.
     Route: 042
  2. TEMSIROLIMUS [Suspect]
     Indication: RENAL CELL CARCINOMA
     Dosage: N DAYS 1,8,15 AND 22. DATE OF LAST DOSE PRIOR TO SAE: 11 MAY 2010.
     Route: 042

REACTIONS (5)
  - Abdominal pain [Not Recovered/Not Resolved]
  - Abdominal infection [Not Recovered/Not Resolved]
  - Decreased appetite [Unknown]
  - Dehydration [Not Recovered/Not Resolved]
  - Hypoalbuminaemia [Recovered/Resolved]
